FAERS Safety Report 12112418 (Version 1)
Quarter: 2016Q1

REPORT INFORMATION
  Report Type: Report from Study
  Country: CA (occurrence: CA)
  Receive Date: 20160225
  Receipt Date: 20160225
  Transmission Date: 20160526
  Serious: Yes (Death, Other)
  Sender: FDA-Public Use
  Company Number: CA-ROCHE-1554676

PATIENT
  Age: 69 Year
  Sex: Male

DRUGS (13)
  1. ZYTIGA [Concomitant]
     Active Substance: ABIRATERONE ACETATE
  2. SALAZOPYRIN [Concomitant]
     Active Substance: SULFASALAZINE
  3. TAMSULOSIN [Concomitant]
     Active Substance: TAMSULOSIN
  4. ACETAMINOPHEN. [Concomitant]
     Active Substance: ACETAMINOPHEN
     Indication: PREMEDICATION
     Route: 048
     Dates: start: 20150319, end: 20151005
  5. FOLIC ACID. [Concomitant]
     Active Substance: FOLIC ACID
  6. LANSOPRAZOLE. [Concomitant]
     Active Substance: LANSOPRAZOLE
  7. D TABS [Concomitant]
  8. XGEVA [Concomitant]
     Active Substance: DENOSUMAB
  9. RITUXAN [Suspect]
     Active Substance: RITUXIMAB
     Indication: RHEUMATOID ARTHRITIS
     Route: 042
     Dates: start: 20150319, end: 20151005
  10. AMITRIPTYLINE [Concomitant]
     Active Substance: AMITRIPTYLINE
  11. PREDNISONE. [Concomitant]
     Active Substance: PREDNISONE
  12. ZOLADEX [Concomitant]
     Active Substance: GOSERELIN ACETATE
  13. DIPHENHYDRAMINE HCL [Concomitant]
     Active Substance: DIPHENHYDRAMINE HYDROCHLORIDE
     Indication: PREMEDICATION
     Route: 048
     Dates: start: 20150319, end: 20151005

REACTIONS (6)
  - Oxygen saturation decreased [Unknown]
  - Hypertension [Unknown]
  - Infusion related reaction [Unknown]
  - Prostate cancer [Fatal]
  - Blood pressure increased [Unknown]
  - Heart rate decreased [Unknown]

NARRATIVE: CASE EVENT DATE: 20150319
